FAERS Safety Report 7331682-2 (Version None)
Quarter: 2011Q1

REPORT INFORMATION
  Report Type: 
  Country: None (occurrence: None)
  Receive Date: 20110304
  Receipt Date: 20110223
  Transmission Date: 20110831
  Serious: Yes (Hospitalization)
  Sender: FDA-Public Use
  Company Number: JP-BAYER-2011-017504

PATIENT
  Age: 86 Year
  Sex: Female

DRUGS (3)
  1. JANUVIA [Concomitant]
     Indication: DIABETES MELLITUS
     Route: 048
  2. AVELOX [Suspect]
     Indication: NASOPHARYNGITIS
     Dosage: 400 MG, BID
     Route: 048
     Dates: start: 20110221, end: 20110222
  3. GLIMEPIRIDE [Concomitant]
     Indication: DIABETES MELLITUS
     Route: 048

REACTIONS (1)
  - HYPOGLYCAEMIA [None]
